FAERS Safety Report 22289163 (Version 1)
Quarter: 2023Q2

REPORT INFORMATION
  Report Type: Spontaneous
  Country: US (occurrence: US)
  Receive Date: 20230505
  Receipt Date: 20230505
  Transmission Date: 20230721
  Serious: No
  Sender: FDA-Public Use
  Company Number: US-BAYER-2023A056512

PATIENT
  Age: 59 Year
  Sex: Female

DRUGS (1)
  1. ESTRADIOL [Suspect]
     Active Substance: ESTRADIOL
     Dosage: 0.0375MG/1D
     Route: 062

REACTIONS (3)
  - Intentional product use issue [None]
  - Device adhesion issue [None]
  - Wrong technique in product usage process [None]
